FAERS Safety Report 4987133-6 (Version None)
Quarter: 2006Q2

REPORT INFORMATION
  Report Type: 
  Country: None (occurrence: None)
  Receive Date: 20060501
  Receipt Date: 20060424
  Transmission Date: 20061013
  Serious: Yes (Death)
  Sender: FDA-Public Use
  Company Number: PHEH2006US05364

PATIENT

DRUGS (1)
  1. LOTREL [Suspect]
     Dosage: UNK,UNK
     Route: 048

REACTIONS (1)
  - DEATH [None]
